FAERS Safety Report 10463478 (Version 1)
Quarter: 2014Q3

REPORT INFORMATION
  Report Type: Spontaneous
  Country: US (occurrence: None)
  Receive Date: 20140918
  Receipt Date: 20140918
  Transmission Date: 20150326
  Serious: Yes (Hospitalization)
  Sender: FDA-Public Use
  Company Number: None

PATIENT
  Age: 78 Year
  Sex: Male
  Weight: 83 kg

DRUGS (4)
  1. ALEMTUZUMAB [Suspect]
     Active Substance: ALEMTUZUMAB
     Dates: start: 20121203, end: 20140123
  2. RITUXIMAB (MOAB C2B8 ANTI CD20, CHIMERIC) [Suspect]
     Active Substance: RITUXIMAB
     Dates: end: 20121022
  3. CYCLOPHOSPHAMIDE. [Suspect]
     Active Substance: CYCLOPHOSPHAMIDE
     Dates: end: 20121022
  4. PENTOSTATIN (DEOXYCOFORMYCIN, DCF) [Suspect]
     Active Substance: PENTOSTATIN
     Dates: end: 20121022

REACTIONS (1)
  - CD4 lymphocytes decreased [None]

NARRATIVE: CASE EVENT DATE: 20130128
